FAERS Safety Report 7315190-0 (Version None)
Quarter: 2011Q1

REPORT INFORMATION
  Report Type: 
  Country: None (occurrence: None)
  Receive Date: 20110225
  Receipt Date: 20110216
  Transmission Date: 20110831
  Serious: Yes (Hospitalization)
  Sender: FDA-Public Use
  Company Number: DE-JNJFOC-20110204874

PATIENT
  Sex: Male

DRUGS (2)
  1. TACROLIMUS [Concomitant]
     Indication: LIVER TRANSPLANT
     Route: 065
  2. HALOPERIDOL [Suspect]
     Indication: PRODUCT USED FOR UNKNOWN INDICATION
     Route: 065

REACTIONS (2)
  - CEREBELLAR ATAXIA [None]
  - MENTAL DISORDER [None]
